FAERS Safety Report 4396732-4 (Version None)
Quarter: 2004Q3

REPORT INFORMATION
  Report Type: 
  Country: None (occurrence: None)
  Receive Date: 20040709
  Receipt Date: 20040705
  Transmission Date: 20050211
  Serious: Yes (Hospitalization)
  Sender: FDA-Public Use
  Company Number: 200410058BSV

PATIENT
  Age: 75 Year
  Sex: Female

DRUGS (4)
  1. CIPROFLOXACIN [Suspect]
     Indication: PERITONITIS
     Dosage: 10 ML, TOTAL DAILY, INTRAVEOUS
     Route: 042
     Dates: start: 20040224
  2. CIPROFLOXACIN [Suspect]
     Indication: SEPSIS
     Dosage: 10 ML, TOTAL DAILY, INTRAVEOUS
     Route: 042
     Dates: start: 20040224
  3. TAZOCIN [Concomitant]
  4. FLAGYL [Concomitant]

REACTIONS (20)
  - ABDOMINAL HAEMATOMA [None]
  - ATELECTASIS [None]
  - BLOOD BILIRUBIN INCREASED [None]
  - CANDIDURIA [None]
  - CARDIOMEGALY [None]
  - DEPRESSED LEVEL OF CONSCIOUSNESS [None]
  - FATIGUE [None]
  - GLYCOPEPTIDE ANTIBIOTIC RESISTANT ENTEROCOCCAL INFECTION [None]
  - HAEMOTHORAX [None]
  - HYPERVENTILATION [None]
  - LIVER FUNCTION TEST ABNORMAL [None]
  - MEDICATION ERROR [None]
  - MUCOSAL DISCOLOURATION [None]
  - OEDEMA MUCOSAL [None]
  - OXYGEN CONSUMPTION INCREASED [None]
  - PLEURAL EFFUSION [None]
  - PURULENCE [None]
  - RESPIRATORY DISORDER [None]
  - RESPIRATORY FAILURE [None]
  - TACHYPNOEA [None]
